FAERS Safety Report 24009367 (Version 3)
Quarter: 2024Q3

REPORT INFORMATION
  Report Type: Report from Study
  Country: US (occurrence: US)
  Receive Date: 20240625
  Receipt Date: 20240802
  Transmission Date: 20241016
  Serious: Yes (Other)
  Sender: BOEHRINGER INGELHEIM
  Company Number: US-BoehringerIngelheim-2024-BI-035872

PATIENT
  Age: 70 Year
  Sex: Female

DRUGS (1)
  1. OFEV [Suspect]
     Active Substance: NINTEDANIB
     Indication: Idiopathic pulmonary fibrosis
     Route: 048
     Dates: start: 20240604

REACTIONS (4)
  - Idiopathic pulmonary fibrosis [Not Recovered/Not Resolved]
  - Productive cough [Unknown]
  - Decreased appetite [Unknown]
  - Ageusia [Unknown]

NARRATIVE: CASE EVENT DATE: 20240601
